FAERS Safety Report 24533535 (Version 1)
Quarter: 2024Q4

REPORT INFORMATION
  Report Type: Spontaneous
  Country: SG (occurrence: SG)
  Receive Date: 20241022
  Receipt Date: 20241022
  Transmission Date: 20250114
  Serious: Yes (Other)
  Sender: REGENERON
  Company Number: SG-BAYER-2024A147818

PATIENT
  Sex: Female

DRUGS (1)
  1. EYLEA [Suspect]
     Active Substance: AFLIBERCEPT
     Indication: Polypoidal choroidal vasculopathy
     Dosage: 2 MG, SOLUTION FOR INJECTION

REACTIONS (1)
  - Drug ineffective for unapproved indication [Not Recovered/Not Resolved]
